FAERS Safety Report 12621546 (Version 1)
Quarter: 2016Q3

REPORT INFORMATION
  Report Type: Spontaneous
  Country: BR (occurrence: BR)
  Receive Date: 20160804
  Receipt Date: 20160804
  Transmission Date: 20161109
  Serious: Yes (Hospitalization, Other)
  Sender: FDA-Public Use
  Company Number: BR-ASTRAZENECA-2016SE81227

PATIENT
  Age: 23608 Day
  Sex: Female

DRUGS (9)
  1. FOLIC ACID. [Concomitant]
     Active Substance: FOLIC ACID
     Indication: ARTHRITIS
     Dates: start: 201606
  2. DEFLAZACORTE [Concomitant]
     Active Substance: DEFLAZACORT
     Dosage: ONCE/SINGLE ADMINISTRATION
     Dates: start: 20160713, end: 20160713
  3. CENTRUM SILVER [Concomitant]
     Active Substance: MINERALS\VITAMINS
  4. FISH OIL [Concomitant]
     Active Substance: FISH OIL
  5. SELOZOK [Suspect]
     Active Substance: METOPROLOL SUCCINATE
     Dosage: 1 TABLET OF 100 MG; 1 TABLET OF 50 MG; 1 TABLET OF 25 MG
     Route: 048
     Dates: start: 2011
  6. SELOZOK [Suspect]
     Active Substance: METOPROLOL SUCCINATE
     Dosage: 1 TABLET OF 100 MG; 1 TABLET OF 50 MG; 1 TABLET OF 25 MG (MEDLEY MANUFACTURER)
     Route: 048
     Dates: start: 20160713
  7. LINSEED OIL [Concomitant]
     Active Substance: LINSEED OIL
  8. METHOTREXATE. [Concomitant]
     Active Substance: METHOTREXATE
     Indication: ARTHRITIS
     Dosage: 4 TABLETS/ONCE A WEEK
     Dates: start: 201606
  9. CALCIUM [Concomitant]
     Active Substance: CALCIUM

REACTIONS (1)
  - Hypertension [Recovering/Resolving]

NARRATIVE: CASE EVENT DATE: 20160713
